FAERS Safety Report 5309306-5 (Version None)
Quarter: 2007Q2

REPORT INFORMATION
  Report Type: 
  Country: None (occurrence: None)
  Receive Date: 20070424
  Receipt Date: 20070424
  Transmission Date: 20071010
  Serious: Yes (Other)
  Sender: FDA-Public Use
  Company Number: None

PATIENT
  Sex: Female

DRUGS (1)
  1. XOLAIR [Suspect]
     Indication: ASTHMA
     Dosage: 150MG EVERY MONTH SQ
     Route: 058
     Dates: start: 20031125

REACTIONS (2)
  - BRONCHOSPASM [None]
  - COUGH [None]
